FAERS Safety Report 10612741 (Version 1)
Quarter: 2014Q4

REPORT INFORMATION
  Report Type: Spontaneous
  Country: US (occurrence: US)
  Receive Date: 20141127
  Receipt Date: 20141127
  Transmission Date: 20150529
  Serious: No
  Sender: FDA-Public Use
  Company Number: US-009507513-1411USA006309

PATIENT
  Age: 23 Year
  Sex: Female
  Weight: 180 kg

DRUGS (1)
  1. IMPLANON [Suspect]
     Active Substance: ETONOGESTREL
     Indication: CONTRACEPTION
     Dosage: 1 DOSAGE FORM FOR 3 YEARS
     Dates: start: 20111101

REACTIONS (1)
  - Expired product administered [Unknown]
